FAERS Safety Report 7518520-X (Version None)
Quarter: 2011Q2

REPORT INFORMATION
  Report Type: 
  Country: None (occurrence: None)
  Receive Date: 20110602
  Receipt Date: 20110516
  Transmission Date: 20111010
  Serious: No
  Sender: FDA-Public Use
  Company Number: US-B.I. PHARMACEUTICALS,INC./RIDGEFIELD-2011-BP-13300BP

PATIENT
  Sex: Female

DRUGS (2)
  1. BISMUTH SUBSALICYLATE [Suspect]
     Indication: DYSPEPSIA
     Route: 048
     Dates: start: 20110501, end: 20110501
  2. ZANTAC [Suspect]
     Indication: DYSPEPSIA
     Dosage: 150 MG
     Route: 048
     Dates: start: 20110515

REACTIONS (1)
  - FAECES DISCOLOURED [None]
